FAERS Safety Report 5263802-8 (Version None)
Quarter: 2007Q1

REPORT INFORMATION
  Report Type: 
  Country: None (occurrence: None)
  Receive Date: 20061213
  Receipt Date: 20031002
  Transmission Date: 20070707
  Serious: Yes (Other)
  Sender: FDA-Public Use
  Company Number: 2003UW12739

PATIENT
  Age: 66 Year
  Sex: Female

DRUGS (1)
  1. IRESSA [Suspect]
     Dates: start: 20030815

REACTIONS (3)
  - COUGH [None]
  - DYSPNOEA [None]
  - PYREXIA [None]
